FAERS Safety Report 6361385-2 (Version None)
Quarter: 2009Q3

REPORT INFORMATION
  Report Type: 
  Country: None (occurrence: None)
  Receive Date: 20090916
  Receipt Date: 20090916
  Transmission Date: 20100115
  Serious: Yes (Other)
  Sender: FDA-Public Use
  Company Number: None

PATIENT
  Sex: Female
  Weight: 80.7403 kg

DRUGS (2)
  1. TEGRETOL [Suspect]
     Indication: CONVULSION
     Dosage: 2 TABLETS TWICE A DAY
     Dates: start: 20090814, end: 20090825
  2. SEROQUEL [Suspect]
     Indication: AGITATION
     Dosage: 1 TABLET ONCE AT NIGHT
     Dates: start: 20090814, end: 20090825

REACTIONS (3)
  - CONVULSION [None]
  - HYPERTENSION [None]
  - MALAISE [None]
